FAERS Safety Report 5906864-4 (Version None)
Quarter: 2008Q3

REPORT INFORMATION
  Report Type: 
  Country: None (occurrence: None)
  Receive Date: 20080929
  Receipt Date: 20080912
  Transmission Date: 20090109
  Serious: Yes (Hospitalization)
  Sender: FDA-Public Use
  Company Number: 2008BI023927

PATIENT
  Age: 61 Year
  Sex: Male

DRUGS (3)
  1. TYSABRI [Suspect]
     Indication: MULTIPLE SCLEROSIS
     Dosage: 300 MG;QM;IV
     Route: 042
     Dates: start: 20070125
  2. AVONEX [Concomitant]
     Indication: MULTIPLE SCLEROSIS
     Dosage: 300 MG;QM;IV
     Route: 042
     Dates: start: 20070125
  3. AVONEX [Concomitant]

REACTIONS (4)
  - BLISTER INFECTED [None]
  - DRUG WITHDRAWAL SYNDROME [None]
  - MENINGITIS [None]
  - URINARY TRACT INFECTION [None]
